FAERS Safety Report 24565194 (Version 1)
Quarter: 2024Q4

REPORT INFORMATION
  Report Type: Spontaneous
  Country: US (occurrence: US)
  Receive Date: 20241030
  Receipt Date: 20241030
  Transmission Date: 20250114
  Serious: Yes (Hospitalization, Disabling, Other)
  Sender: HIKMA
  Company Number: US-MLMSERVICE-20241009-PI221580-00033-1

PATIENT
  Age: 58 Year
  Sex: Female

DRUGS (3)
  1. ASPIRIN [Suspect]
     Active Substance: ASPIRIN
     Indication: Antiplatelet therapy
     Dosage: FOR YEARS
     Route: 065
  2. HEPARIN [Suspect]
     Active Substance: HEPARIN SODIUM
     Indication: Product used for unknown indication
     Dosage: DURING, BUT NOT AFTER, THE PROCEDURE (TOTAL DOSE UNKNOWN)
     Route: 065
  3. PLAVIX [Suspect]
     Active Substance: CLOPIDOGREL BISULFATE
     Indication: Antiplatelet therapy
     Dosage: STARTED ONE WEEK PRE-PROCEDURE
     Route: 065

REACTIONS (3)
  - Orbital haematoma [Not Recovered/Not Resolved]
  - Blindness [Not Recovered/Not Resolved]
  - Orbital compartment syndrome [Not Recovered/Not Resolved]
